FAERS Safety Report 8585446-2 (Version None)
Quarter: 2012Q3

REPORT INFORMATION
  Report Type: 
  Country: None (occurrence: None)
  Receive Date: 20120810
  Receipt Date: 20120802
  Transmission Date: 20120928
  Serious: Yes (Hospitalization)
  Sender: FDA-Public Use
  Company Number: AU-SANOFI-AVENTIS-2012SA056409

PATIENT
  Age: 64 Year
  Sex: Male

DRUGS (6)
  1. CABAZITAXEL [Suspect]
     Route: 042
     Dates: start: 20120726, end: 20120726
  2. CABAZITAXEL [Suspect]
     Indication: PROSTATE CANCER METASTATIC
     Route: 042
     Dates: start: 20120614, end: 20120614
  3. ENOXAPARIN SODIUM [Concomitant]
     Route: 058
     Dates: start: 20120507
  4. PREDNISOLONE [Suspect]
     Indication: PROSTATE CANCER METASTATIC
     Route: 048
     Dates: start: 20120614, end: 20120801
  5. CALCIUM CARBONATE [Concomitant]
     Route: 048
     Dates: start: 20120427
  6. PRAMIN [Concomitant]
     Route: 048
     Dates: start: 20120501

REACTIONS (1)
  - PULMONARY EMBOLISM [None]
